FAERS Safety Report 5430981-9 (Version None)
Quarter: 2007Q3

REPORT INFORMATION
  Report Type: 
  Country: None (occurrence: None)
  Receive Date: 20070830
  Receipt Date: 20070824
  Transmission Date: 20080115
  Serious: Yes (Other)
  Sender: FDA-Public Use
  Company Number: A0677069A

PATIENT
  Age: 48 Year
  Sex: Male

DRUGS (9)
  1. WELLBUTRIN [Suspect]
     Indication: DEPRESSION
     Dosage: 100MG TWICE PER DAY
     Route: 048
     Dates: start: 20060115
  2. PEGASYS [Suspect]
     Indication: HEPATITIS C
     Dosage: 180MCG WEEKLY
     Route: 058
     Dates: start: 20060314, end: 20070715
  3. COPEGUS [Suspect]
     Indication: HEPATITIS C
     Dosage: 200MG PER DAY
     Route: 048
     Dates: start: 20060314
  4. KLONOPIN [Concomitant]
     Indication: TREMOR
  5. LEXAPRO [Concomitant]
     Indication: DEPRESSION
     Dates: start: 20060115
  6. OXYCONTIN [Concomitant]
     Indication: BACK PAIN
  7. ATENOLOL [Concomitant]
  8. XANAX [Concomitant]
     Indication: ANXIETY
  9. PROTONIX [Concomitant]

REACTIONS (14)
  - AMNESIA [None]
  - ASTHENIA [None]
  - DEHYDRATION [None]
  - DIARRHOEA [None]
  - DRUG INEFFECTIVE [None]
  - FEELING ABNORMAL [None]
  - HYPERSOMNIA [None]
  - INSOMNIA [None]
  - MALAISE [None]
  - PLATELET COUNT DECREASED [None]
  - PROTEIN TOTAL INCREASED [None]
  - RED BLOOD CELL COUNT DECREASED [None]
  - VOMITING [None]
  - WHITE BLOOD CELL COUNT DECREASED [None]
